FAERS Safety Report 8177907-5 (Version None)
Quarter: 2012Q1

REPORT INFORMATION
  Report Type: 
  Country: None (occurrence: None)
  Receive Date: 20120301
  Receipt Date: 20120222
  Transmission Date: 20120608
  Serious: Yes (Other)
  Sender: FDA-Public Use
  Company Number: FR-PFIZER INC-2012048223

PATIENT
  Age: 2 Year
  Weight: 13.605 kg

DRUGS (1)
  1. RELPAX [Suspect]
     Dosage: 40 MG

REACTIONS (1)
  - TOXICITY TO VARIOUS AGENTS [None]
